FAERS Safety Report 23597265 (Version 1)
Quarter: 2024Q1

REPORT INFORMATION
  Report Type: Spontaneous
  Country: TR (occurrence: TR)
  Receive Date: 20240305
  Receipt Date: 20240305
  Transmission Date: 20240409
  Serious: Yes (Other)
  Sender: FDA-Public Use
  Company Number: TR-002147023-NVSC2024TR043621

PATIENT
  Age: 18 Year
  Sex: Female

DRUGS (2)
  1. RITALIN [Suspect]
     Active Substance: METHYLPHENIDATE HYDROCHLORIDE
     Indication: Product used for unknown indication
     Dosage: UNK, QD (FOR 8 DAYS)
     Route: 065
  2. CEDRINA [Concomitant]
     Indication: Product used for unknown indication
     Dosage: UNK
     Route: 065

REACTIONS (11)
  - Suicidal ideation [Unknown]
  - Yellow skin [Unknown]
  - Eye pain [Unknown]
  - Strabismus [Unknown]
  - Cold sweat [Unknown]
  - Emotional distress [Unknown]
  - Nervousness [Unknown]
  - Headache [Unknown]
  - Insomnia [Unknown]
  - Heart rate increased [Unknown]
  - Palpitations [Unknown]
